FAERS Safety Report 21530825 (Version 1)
Quarter: 2022Q4

REPORT INFORMATION
  Report Type: Spontaneous
  Country: US (occurrence: US)
  Receive Date: 20221031
  Receipt Date: 20221031
  Transmission Date: 20230112
  Serious: Yes (Hospitalization)
  Sender: FDA-Public Use
  Company Number: DEX 2022-0087(0)

PATIENT
  Age: 27 Year
  Sex: Female

DRUGS (8)
  1. DEXMEDETOMIDINE HYDROCHLORIDE [Suspect]
     Active Substance: DEXMEDETOMIDINE HYDROCHLORIDE
     Indication: Intensive care unit delirium
     Dosage: 0.1-0.7 MICROGRAM/KILOGRAM (1 HR)
     Route: 065
  2. DEXMEDETOMIDINE HYDROCHLORIDE [Suspect]
     Active Substance: DEXMEDETOMIDINE HYDROCHLORIDE
     Indication: Agitation
  3. MIDAZOLAM [Suspect]
     Active Substance: MIDAZOLAM
     Indication: Intensive care unit delirium
     Dosage: 1-10 MILLIGRAM (1 HR)
     Route: 065
  4. MIDAZOLAM [Suspect]
     Active Substance: MIDAZOLAM
     Indication: Agitation
  5. KETAMINE [Suspect]
     Active Substance: KETAMINE
     Indication: Intensive care unit delirium
     Dosage: 1-10 MICROGRAM/KILOGRAM, (1 MIN)
     Route: 065
  6. KETAMINE [Suspect]
     Active Substance: KETAMINE
     Indication: Agitation
  7. LORAZEPAM [Suspect]
     Active Substance: LORAZEPAM
     Indication: Intensive care unit delirium
     Dosage: 1-10 MG (1 HR)
     Route: 065
  8. LORAZEPAM [Suspect]
     Active Substance: LORAZEPAM
     Indication: Agitation

REACTIONS (2)
  - Posterior reversible encephalopathy syndrome [Unknown]
  - Drug ineffective [Unknown]
